FAERS Safety Report 6508668-0 (Version None)
Quarter: 2009Q4

REPORT INFORMATION
  Report Type: 
  Country: None (occurrence: None)
  Receive Date: 20091221
  Receipt Date: 20090803
  Transmission Date: 20100525
  Serious: No
  Sender: FDA-Public Use
  Company Number: US-ASTRAZENECA-2009SE06657

PATIENT
  Sex: Female
  Weight: 70.3 kg

DRUGS (2)
  1. CRESTOR [Suspect]
     Route: 048
  2. DILTIAZEM [Concomitant]

REACTIONS (3)
  - CYSTITIS [None]
  - PAIN [None]
  - PYREXIA [None]
